FAERS Safety Report 19403289 (Version 1)
Quarter: 2021Q2

REPORT INFORMATION
  Report Type: Spontaneous
  Country: US (occurrence: US)
  Receive Date: 20210610
  Receipt Date: 20210610
  Transmission Date: 20210717
  Serious: No
  Sender: FDA-Public Use
  Company Number: US-GALDERMA-US2020042965

PATIENT
  Sex: Female

DRUGS (1)
  1. EPIDUO FORTE [Suspect]
     Active Substance: ADAPALENE\BENZOYL PEROXIDE
     Indication: PRODUCT USED FOR UNKNOWN INDICATION
     Dosage: (ADAPALENE 0.3%/ BENZOYL PEROXIDE 2.5%)
     Route: 061

REACTIONS (3)
  - Intentional product misuse [Recovered/Resolved]
  - Poor quality product administered [Recovered/Resolved]
  - Product storage error [Recovered/Resolved]
